FAERS Safety Report 21309928 (Version 1)
Quarter: 2022Q3

REPORT INFORMATION
  Report Type: Spontaneous
  Country: NL (occurrence: NL)
  Receive Date: 20220909
  Receipt Date: 20220909
  Transmission Date: 20221026
  Serious: Yes (Death, Other)
  Sender: FDA-Public Use
  Company Number: NL-ENDO PHARMACEUTICALS INC-2022-005361

PATIENT
  Age: 30 Year
  Sex: Male

DRUGS (2)
  1. AVEED [Suspect]
     Active Substance: TESTOSTERONE UNDECANOATE
     Indication: Transgender hormonal therapy
     Dosage: UNK UNKNOWN, UNKNOWN (FOR FIVE YEARS )
     Route: 030
  2. TESTIM [Suspect]
     Active Substance: TESTOSTERONE
     Indication: Transgender hormonal therapy
     Dosage: UNK UNKNOWN, UNKNOWN (FOR TWO YEARS)
     Route: 061

REACTIONS (2)
  - Cervix carcinoma stage IV [Fatal]
  - Off label use [Recovered/Resolved]
